FAERS Safety Report 4743824-3 (Version None)
Quarter: 2005Q3

REPORT INFORMATION
  Report Type: 
  Country: None (occurrence: None)
  Receive Date: 20050809
  Receipt Date: 20050524
  Transmission Date: 20060218
  Serious: Yes (Hospitalization)
  Sender: FDA-Public Use
  Company Number: 2005FR-00188

PATIENT
  Age: 62 Year
  Sex: Male

DRUGS (1)
  1. ASPIRIN [Suspect]
     Dosage: 75 MG
     Dates: start: 20040101, end: 20040601

REACTIONS (2)
  - DUODENAL ULCER PERFORATION [None]
  - GASTRIC ULCER PERFORATION [None]
